FAERS Safety Report 12498050 (Version 1)
Quarter: 2016Q2

REPORT INFORMATION
  Report Type: Report from Study
  Country: US (occurrence: US)
  Receive Date: 20160626
  Receipt Date: 20160626
  Transmission Date: 20160815
  Serious: Yes (Hospitalization)
  Sender: FDA-Public Use
  Company Number: US-ABBVIE-16K-163-1549130-00

PATIENT
  Age: 33 Year
  Sex: Female

DRUGS (1)
  1. HUMIRA [Suspect]
     Active Substance: ADALIMUMAB
     Indication: CROHN^S DISEASE
     Route: 058
     Dates: start: 20151217

REACTIONS (3)
  - Exposure during pregnancy [Unknown]
  - Gestational diabetes [Not Recovered/Not Resolved]
  - Caesarean section [Recovering/Resolving]

NARRATIVE: CASE EVENT DATE: 20160509
